FAERS Safety Report 6948502-8 (Version None)
Quarter: 2010Q3

REPORT INFORMATION
  Report Type: 
  Country: None (occurrence: None)
  Receive Date: 20100828
  Receipt Date: 20091111
  Transmission Date: 20110219
  Serious: No
  Sender: FDA-Public Use
  Company Number: US-ABBOTT-09P-163-0608881-00

PATIENT
  Sex: Female
  Weight: 62.652 kg

DRUGS (4)
  1. NIASPAN [Suspect]
     Indication: HYPERCHOLESTEROLAEMIA
     Dates: start: 20090819, end: 20091101
  2. NIASPAN [Suspect]
     Dates: start: 20091102, end: 20091107
  3. TOPROL-XL [Concomitant]
     Indication: HYPERTENSION
  4. TOPROL-XL [Concomitant]
     Indication: PALPITATIONS

REACTIONS (5)
  - ARTHRALGIA [None]
  - HEADACHE [None]
  - MYALGIA [None]
  - PRURITUS [None]
  - SUNBURN [None]
